FAERS Safety Report 11794458 (Version 3)
Quarter: 2015Q4

REPORT INFORMATION
  Report Type: Spontaneous
  Country: JP (occurrence: JP)
  Receive Date: 20151202
  Receipt Date: 20151214
  Transmission Date: 20160305
  Serious: Yes (Hospitalization)
  Sender: FDA-Public Use
  Company Number: JP-TAKEDA-2015MPI008049

PATIENT

DRUGS (10)
  1. PREDNISOLONE. [Suspect]
     Active Substance: PREDNISOLONE
     Dosage: 100 MG, QD
     Route: 048
     Dates: start: 20151027, end: 20151027
  2. RITUXIMAB [Suspect]
     Active Substance: RITUXIMAB
     Indication: MANTLE CELL LYMPHOMA
     Dosage: 375 MG, QD
     Route: 042
     Dates: start: 20151027, end: 20151027
  3. RITUXIMAB [Suspect]
     Active Substance: RITUXIMAB
     Dosage: 375 MG, QD
     Route: 042
     Dates: start: 20151130
  4. PREDNISOLONE. [Suspect]
     Active Substance: PREDNISOLONE
     Dosage: 100 MG, QD
     Route: 048
     Dates: start: 20151130
  5. DOXORUBICIN HYDROCHLORIDE. [Suspect]
     Active Substance: DOXORUBICIN HYDROCHLORIDE
     Indication: MANTLE CELL LYMPHOMA
     Dosage: 50 MG, QD
     Route: 042
     Dates: start: 20151027, end: 20151027
  6. CYCLOPHOSPHAMIDE. [Suspect]
     Active Substance: CYCLOPHOSPHAMIDE
     Dosage: 750 MG, QD
     Route: 042
     Dates: start: 20151130
  7. CYCLOPHOSPHAMIDE. [Suspect]
     Active Substance: CYCLOPHOSPHAMIDE
     Indication: MANTLE CELL LYMPHOMA
     Dosage: 750 MG, QD
     Route: 042
     Dates: start: 20151027, end: 20151027
  8. VELCADE [Suspect]
     Active Substance: BORTEZOMIB
     Dosage: 1 MG, QD
     Route: 042
     Dates: start: 20151130
  9. VELCADE [Suspect]
     Active Substance: BORTEZOMIB
     Indication: MANTLE CELL LYMPHOMA
     Dosage: 1 MG, QD
     Route: 042
     Dates: start: 20151027, end: 20151027
  10. DOXORUBICIN HYDROCHLORIDE. [Suspect]
     Active Substance: DOXORUBICIN HYDROCHLORIDE
     Dosage: 50 MG, QD
     Route: 042
     Dates: start: 20151130

REACTIONS (1)
  - Cholecystitis [Recovered/Resolved]

NARRATIVE: CASE EVENT DATE: 20151103
